FAERS Safety Report 19828568 (Version 2)
Quarter: 2021Q4

REPORT INFORMATION
  Report Type: Spontaneous
  Country: IT (occurrence: IT)
  Receive Date: 20210915
  Receipt Date: 20211008
  Transmission Date: 20220303
  Serious: Yes (Other)
  Sender: FDA-Public Use
  Company Number: IT-MLMSERVICE-20210901-3080160-2

PATIENT
  Age: 44 Year
  Sex: Female

DRUGS (4)
  1. GEMCITABINE [Suspect]
     Active Substance: GEMCITABINE
     Indication: Triple positive breast cancer
     Dosage: 8000 MILLIGRAM/SQ. METER (4 CYCLE 1000 MG/M2 .D1, D8 EVERY THREE WEEKS)
     Route: 065
     Dates: start: 202004
  2. OXYCODONE [Suspect]
     Active Substance: OXYCODONE
     Indication: Pain
     Dosage: UNK
     Route: 065
     Dates: start: 2020
  3. NALOXONE [Suspect]
     Active Substance: NALOXONE
     Indication: Pain
     Dosage: UNK
     Route: 065
     Dates: start: 2020
  4. TRASTUZUMAB [Suspect]
     Active Substance: TRASTUZUMAB
     Indication: Triple positive breast cancer
     Dosage: 24 MILLIGRAM/KILOGRAM (4 CYCLE 6 MG/KG EVERY THREE WEEKS)
     Route: 065
     Dates: start: 202004

REACTIONS (2)
  - Hypertransaminasaemia [Unknown]
  - Hepatotoxicity [Unknown]

NARRATIVE: CASE EVENT DATE: 20200101
